FAERS Safety Report 10094036 (Version 3)
Quarter: 2014Q2

REPORT INFORMATION
  Report Type: Spontaneous
  Country: JP (occurrence: JP)
  Receive Date: 20140422
  Receipt Date: 20140602
  Transmission Date: 20141212
  Serious: Yes (Hospitalization)
  Sender: FDA-Public Use
  Company Number: JP-ROCHE-1387364

PATIENT
  Age: 53 Year
  Sex: Male

DRUGS (2)
  1. XOLAIR [Suspect]
     Indication: ASTHMA
     Route: 058
  2. XOLAIR [Suspect]
     Route: 058
     Dates: start: 20140322, end: 20140322

REACTIONS (7)
  - Hypersensitivity [Recovered/Resolved]
  - Wound infection staphylococcal [Unknown]
  - Herpes virus infection [Unknown]
  - Diarrhoea [Unknown]
  - Blood creatinine increased [Unknown]
  - Blood urea increased [Unknown]
  - White blood cell count increased [Unknown]
